FAERS Safety Report 10034776 (Version 2)
Quarter: 2014Q1

REPORT INFORMATION
  Report Type: Spontaneous
  Country: MY (occurrence: MY)
  Receive Date: 20140325
  Receipt Date: 20140325
  Transmission Date: 20141002
  Serious: Yes (Other)
  Sender: FDA-Public Use
  Company Number: MY-PFIZER INC-2014019244

PATIENT
  Age: 58 Year
  Sex: Female
  Weight: 70 kg

DRUGS (3)
  1. PHENYTOIN SODIUM [Suspect]
     Indication: STATUS EPILEPTICUS
     Dosage: 1.2 G, SINGLE
     Route: 042
     Dates: start: 20121027, end: 20121027
  2. AUGMENTIN [Concomitant]
     Indication: PNEUMONIA
     Dosage: 1.2 G, 3X/DAY
     Route: 042
     Dates: start: 20121027
  3. RANITIDINE [Concomitant]
     Dosage: 50 MG, 3X/DAY
     Route: 042
     Dates: start: 20121027, end: 20121029

REACTIONS (2)
  - Anaphylactic reaction [Recovered/Resolved]
  - Generalised oedema [Recovered/Resolved]
